FAERS Safety Report 18579672 (Version 1)
Quarter: 2020Q4

REPORT INFORMATION
  Report Type: Spontaneous
  Country: DE (occurrence: DE)
  Receive Date: 20201204
  Receipt Date: 20201204
  Transmission Date: 20210114
  Serious: Yes (Disabling)
  Sender: FDA-Public Use
  Company Number: DE-BAYER-2020-109966

PATIENT
  Age: 71 Year
  Sex: Female

DRUGS (2)
  1. ULTRAVIST [Suspect]
     Active Substance: IOPROMIDE
     Indication: POSTOPERATIVE CARE
     Dosage: 50 ML, ONCE
     Route: 042
     Dates: start: 20190917, end: 20190917
  2. ULTRAVIST [Suspect]
     Active Substance: IOPROMIDE
     Indication: SCAN WITH CONTRAST
     Dosage: 60 ML, ONCE
     Route: 042
     Dates: start: 20191210, end: 20191210

REACTIONS (1)
  - Alopecia totalis [Not Recovered/Not Resolved]

NARRATIVE: CASE EVENT DATE: 20191220
